FAERS Safety Report 25245711 (Version 1)
Quarter: 2025Q2

REPORT INFORMATION
  Report Type: Spontaneous
  Country: US (occurrence: None)
  Receive Date: 20250426
  Receipt Date: 20250426
  Transmission Date: 20250716
  Serious: Yes (Hospitalization)
  Sender: FDA-CTU
  Company Number: None

PATIENT
  Sex: Female

DRUGS (2)
  1. GENOTROPIN [Suspect]
     Active Substance: SOMATROPIN
     Indication: Hypopituitarism
     Dosage: INJECT 0.5 MG UNDER THE SKIN (SUBCUTANEOUS INJECTION) DAILY?
     Route: 058
     Dates: start: 20230815
  2. PREDNISONE [Concomitant]
     Active Substance: PREDNISONE

REACTIONS (3)
  - Therapy interrupted [None]
  - Seizure [None]
  - Nonspecific reaction [None]
